FAERS Safety Report 9215972 (Version 1)
Quarter: 2013Q2

REPORT INFORMATION
  Report Type: Spontaneous
  Country: US (occurrence: None)
  Receive Date: 20130402
  Receipt Date: 20130402
  Transmission Date: 20140414
  Serious: Yes (Hospitalization)
  Sender: FDA-Public Use
  Company Number: 2013P1003649

PATIENT
  Age: 62 Year
  Sex: Male

DRUGS (2)
  1. LIDOCAINE / EPINEPHRINE [Suspect]
     Indication: KNEE OPERATION
  2. LIDOCAINE / EPINEPHRINE [Suspect]
     Indication: PREOPERATIVE CARE

REACTIONS (6)
  - Bradycardia [None]
  - Hypotension [None]
  - Atrial fibrillation [None]
  - Dilatation atrial [None]
  - Presyncope [None]
  - Anaesthetic complication [None]
